FAERS Safety Report 5744457-2 (Version None)
Quarter: 2008Q2

REPORT INFORMATION
  Report Type: 
  Country: None (occurrence: None)
  Receive Date: 20080520
  Receipt Date: 20080509
  Transmission Date: 20081010
  Serious: Yes (Hospitalization)
  Sender: FDA-Public Use
  Company Number: US-SANOFI-SYNTHELABO-F01200700492

PATIENT
  Sex: Female
  Weight: 65.9 kg

DRUGS (9)
  1. CA/MG OR PLACEBO [Suspect]
     Route: 042
     Dates: start: 20070205, end: 20070205
  2. LEUCOVORIN CALCIUM [Suspect]
     Route: 042
     Dates: start: 20070402, end: 20070402
  3. FLUOROURACIL [Suspect]
     Dosage: 2400 MG/M2 IV ON DAY 1 AND DAY 2, Q2W
     Route: 042
     Dates: start: 20070402, end: 20070403
  4. OXALIPLATIN [Suspect]
     Indication: COLORECTAL CANCER METASTATIC
     Route: 042
     Dates: start: 20070205, end: 20070205
  5. ARANESP [Concomitant]
     Route: 065
  6. BEVACIZUMAB [Suspect]
     Route: 042
     Dates: start: 20070402, end: 20070402
  7. FERROUS SULFATE TAB [Concomitant]
     Route: 048
  8. ZOFRAN [Concomitant]
     Route: 065
  9. COUMADIN [Concomitant]
     Route: 048

REACTIONS (1)
  - CHOLECYSTITIS [None]
